FAERS Safety Report 7992102-8 (Version None)
Quarter: 2011Q4

REPORT INFORMATION
  Report Type: 
  Country: None (occurrence: None)
  Receive Date: 20111219
  Receipt Date: 20101207
  Transmission Date: 20120403
  Serious: No
  Sender: FDA-Public Use
  Company Number: US-ASTRAZENECA-2010SE58087

PATIENT
  Age: 25568 Day
  Sex: Female
  Weight: 35.8 kg

DRUGS (5)
  1. PLAVIX [Concomitant]
  2. PROTONIX [Concomitant]
  3. METOPROLOL [Concomitant]
  4. CRESTOR [Suspect]
     Indication: BLOOD CHOLESTEROL INCREASED
     Route: 048
     Dates: start: 20101201
  5. NITROGLYCERIN [Concomitant]

REACTIONS (1)
  - DYSPNOEA [None]
